FAERS Safety Report 8536049 (Version 6)
Quarter: 2012Q4

REPORT INFORMATION
  Report Type: 
  Country: US (occurrence: US)
  Receive Date: 20120430
  Receipt Date: 20121017
  Transmission Date: 20130627
  Serious: Yes (Hospitalization)
  Sender: FDA-Public Use
  Company Number: US-ACTELION-A-NJ2008-19242

PATIENT
  Age: 59 Year
  Sex: Female
  Weight: 81.63 kg

DRUGS (9)
  1. VENTAVIS [Suspect]
     Indication: PULMONARY ARTERIAL HYPERTENSION
     Dosage: 5 ug, 6 x a day
     Route: 055
     Dates: start: 20070428, end: 20080118
  2. VENTAVIS [Suspect]
     Dosage: 5 ug, tid
     Route: 055
     Dates: start: 2008, end: 20080228
  3. VENTAVIS [Suspect]
     Dosage: 5 ug, qid
     Route: 055
     Dates: start: 20080821
  4. VENTAVIS [Suspect]
     Dosage: 4-5 x per daily
     Route: 055
     Dates: start: 20120316
  5. REVATIO [Concomitant]
  6. ALDACTONE [Concomitant]
  7. PROCARDIA [Concomitant]
  8. BENICAR [Concomitant]
  9. COUMADIN [Concomitant]

REACTIONS (13)
  - Hypotension [Unknown]
  - Syncope [Unknown]
  - Dehydration [Recovering/Resolving]
  - Swelling face [Recovered/Resolved]
  - Epistaxis [Recovered/Resolved]
  - Cough [Unknown]
  - Nasal congestion [Unknown]
  - Rhinorrhoea [Unknown]
  - Sneezing [Unknown]
  - Dysphonia [Unknown]
  - Headache [Unknown]
  - Dizziness [Recovering/Resolving]
  - Sinusitis [Not Recovered/Not Resolved]
